FAERS Safety Report 11582331 (Version 1)
Quarter: 2015Q3

REPORT INFORMATION
  Report Type: Spontaneous
  Country: US (occurrence: None)
  Receive Date: 20150930
  Receipt Date: 20150930
  Transmission Date: 20151125
  Serious: Yes (Life-Threatening, Other)
  Sender: FDA-Public Use
  Company Number: None

PATIENT
  Age: 34 Year
  Sex: Male
  Weight: 71.67 kg

DRUGS (9)
  1. ALAVERT (LORATADINE) [Concomitant]
  2. ZYRTEC [Concomitant]
     Active Substance: CETIRIZINE HYDROCHLORIDE
  3. MEDROL [Suspect]
     Active Substance: METHYLPREDNISOLONE
     Indication: INTERVERTEBRAL DISC PROTRUSION
     Dosage: MEDROL 80 MG/ML INJECTION, INJECTED INTO SPINAL AREA
     Dates: start: 20140115, end: 20150115
  4. NASONEX [Concomitant]
     Active Substance: MOMETASONE FUROATE
  5. BENADRYL [Concomitant]
     Active Substance: DIPHENHYDRAMINE HYDROCHLORIDE
  6. ALIGN (PROBIOTIC) [Concomitant]
  7. VITAMIN D [Concomitant]
     Active Substance: CHOLECALCIFEROL
  8. MULTIVITAMINS [Concomitant]
     Active Substance: VITAMINS
  9. VITAMIN B12 [Concomitant]
     Active Substance: CYANOCOBALAMIN

REACTIONS (8)
  - Viral infection [None]
  - Rhinorrhoea [None]
  - Cataract [None]
  - Acne [None]
  - Chills [None]
  - Malaise [None]
  - Throat irritation [None]
  - Oropharyngeal pain [None]

NARRATIVE: CASE EVENT DATE: 20150824
